FAERS Safety Report 8084124-6 (Version None)
Quarter: 2012Q1

REPORT INFORMATION
  Report Type: 
  Country: None (occurrence: None)
  Receive Date: 20120128
  Receipt Date: 20110208
  Transmission Date: 20120608
  Serious: No
  Sender: FDA-Public Use
  Company Number: US-ABBOTT-11P-163-0703564-00

PATIENT
  Sex: Male
  Weight: 77.18 kg

DRUGS (3)
  1. PENTASA [Concomitant]
     Indication: CROHN'S DISEASE
  2. HUMIRA [Suspect]
     Indication: CROHN'S DISEASE
     Dosage: LOADING DOSE
     Route: 058
     Dates: start: 20110129
  3. METHOTREXATE [Concomitant]
     Indication: CROHN'S DISEASE
     Route: 048

REACTIONS (3)
  - NAUSEA [None]
  - PARANASAL SINUS HYPERSECRETION [None]
  - FATIGUE [None]
